FAERS Safety Report 6395599-2 (Version None)
Quarter: 2009Q4

REPORT INFORMATION
  Report Type: 
  Country: None (occurrence: None)
  Receive Date: 20091009
  Receipt Date: 20091005
  Transmission Date: 20100525
  Serious: Yes (Hospitalization, Other)
  Sender: FDA-Public Use
  Company Number: US-PURDUE-USA-2009-0039047

PATIENT
  Sex: Female
  Weight: 68.481 kg

DRUGS (1)
  1. OXYCONTIN [Suspect]
     Indication: ANALGESIC THERAPY
     Dosage: 80 MG, BID
     Dates: start: 19991224, end: 20010204

REACTIONS (7)
  - AMNESIA [None]
  - ANXIETY [None]
  - CHEST PAIN [None]
  - DRUG DEPENDENCE [None]
  - DRUG WITHDRAWAL SYNDROME [None]
  - FEELING OF DESPAIR [None]
  - SUICIDAL IDEATION [None]
